FAERS Safety Report 6164510-1 (Version None)
Quarter: 2009Q2

REPORT INFORMATION
  Report Type: 
  Country: None (occurrence: None)
  Receive Date: 20090421
  Receipt Date: 20090417
  Transmission Date: 20091009
  Serious: Yes (Other)
  Sender: FDA-Public Use
  Company Number: SP02345

PATIENT
  Age: 66 Year
  Sex: Female
  Weight: 50 kg

DRUGS (2)
  1. MOVIPREP [Suspect]
     Indication: COLONOSCOPY
     Dosage: 2 LIT,ORAL
     Route: 048
     Dates: start: 20090331, end: 20090331
  2. PANTOZOLE 40 [Concomitant]

REACTIONS (3)
  - ERYTHEMA [None]
  - HEAT RASH [None]
  - SWELLING FACE [None]
